APPROVED DRUG PRODUCT: PREVACID
Active Ingredient: LANSOPRAZOLE
Strength: 30MG
Dosage Form/Route: CAPSULE, DELAYED REL PELLETS;ORAL
Application: N020406 | Product #002 | TE Code: AB
Applicant: TAKEDA PHARMACEUTICALS USA INC
Approved: May 10, 1995 | RLD: Yes | RS: Yes | Type: RX